FAERS Safety Report 7087879-2 (Version None)
Quarter: 2010Q4

REPORT INFORMATION
  Report Type: 
  Country: None (occurrence: None)
  Receive Date: 20101020
  Receipt Date: 20101008
  Transmission Date: 20110411
  Serious: Yes (Hospitalization)
  Sender: FDA-Public Use
  Company Number: AEUSA201000388

PATIENT
  Age: 68 Year
  Sex: Female

DRUGS (6)
  1. GAMUNEX [Suspect]
     Indication: UPPER MOTOR NEURONE LESION
     Dosage: 40 GM; QD; IV
     Route: 042
     Dates: start: 20101005, end: 20101006
  2. FAMPRIDINE [Concomitant]
  3. CALCIUM WITH VITAMIN D /01233101/ [Concomitant]
  4. VITAMINUM B-COMPLEX [Concomitant]
  5. BACLOFEN [Concomitant]
  6. BONIVA [Concomitant]

REACTIONS (5)
  - BLOOD SODIUM DECREASED [None]
  - HEADACHE [None]
  - NAUSEA [None]
  - PNEUMONIA [None]
  - VOMITING [None]
